FAERS Safety Report 15584645 (Version 1)
Quarter: 2018Q4

REPORT INFORMATION
  Report Type: Report from Study
  Country: US (occurrence: US)
  Receive Date: 20181105
  Receipt Date: 20181105
  Transmission Date: 20190205
  Serious: No
  Sender: FDA-Public Use
  Company Number: US-HTU-2018US017305

PATIENT
  Sex: Female

DRUGS (3)
  1. VALCHLOR [Suspect]
     Active Substance: MECHLORETHAMINE
     Indication: MYCOSIS FUNGOIDES
     Dosage: THIN FILM TO AFFECTED SKIN, DAILY
     Route: 061
  2. VALCHLOR [Suspect]
     Active Substance: MECHLORETHAMINE
     Dosage: UNK, BID
     Route: 061
  3. VALCHLOR [Suspect]
     Active Substance: MECHLORETHAMINE
     Dosage: UNK, QD
     Route: 061
     Dates: start: 20180104

REACTIONS (15)
  - Skin sensitisation [Recovering/Resolving]
  - Musculoskeletal stiffness [Unknown]
  - Erythema [Recovered/Resolved]
  - Joint stiffness [Not Recovered/Not Resolved]
  - Tenderness [Recovered/Resolved]
  - Application site pruritus [Not Recovered/Not Resolved]
  - Dry skin [Not Recovered/Not Resolved]
  - Back pain [Not Recovered/Not Resolved]
  - Application site warmth [Not Recovered/Not Resolved]
  - Skin irritation [Recovering/Resolving]
  - Rash [Recovered/Resolved]
  - Skin discolouration [Unknown]
  - Application site discolouration [Not Recovered/Not Resolved]
  - Pain of skin [Recovering/Resolving]
  - Blister [Recovered/Resolved]
